FAERS Safety Report 8888200 (Version 1)
Quarter: 2012Q4

REPORT INFORMATION
  Report Type: 
  Country: FR (occurrence: FR)
  Receive Date: 20121106
  Receipt Date: 20121106
  Transmission Date: 20130627
  Serious: Yes (Hospitalization)
  Sender: FDA-Public Use
  Company Number: FR-ACTELION-A-CH2009-28242

PATIENT
  Age: 71 Year
  Sex: Female
  Weight: 63 kg

DRUGS (13)
  1. TRACLEER [Suspect]
     Indication: DIGITAL ULCER
     Dosage: 125 mg, bid
     Route: 048
     Dates: start: 200909, end: 20090922
  2. TRACLEER [Suspect]
     Dosage: 62.5 mg, bid
     Route: 048
     Dates: start: 20090801, end: 200909
  3. MOTILIUM [Concomitant]
  4. LOXEN [Concomitant]
  5. RIVOTRIL [Concomitant]
  6. INEXIUM [Concomitant]
  7. PREVISCAN [Concomitant]
  8. CORTANCYL [Concomitant]
  9. ATARAX [Concomitant]
  10. TARDYFERON [Concomitant]
  11. OROCAL D(3) [Concomitant]
  12. ILOPROST [Concomitant]
     Route: 042
  13. STILNOX [Concomitant]

REACTIONS (16)
  - Drug reaction with eosinophilia and systemic symptoms [Recovered/Resolved]
  - Hepatocellular injury [Recovered/Resolved]
  - Drug effect incomplete [Unknown]
  - Pyrexia [Recovered/Resolved]
  - Asthenia [Recovered/Resolved]
  - Headache [Recovered/Resolved]
  - Rash [Recovered/Resolved]
  - Rash maculo-papular [Recovered/Resolved]
  - Systemic inflammatory response syndrome [Recovered/Resolved]
  - Eosinophilia [Recovered/Resolved]
  - Aspartate aminotransferase increased [Recovered/Resolved]
  - Alanine aminotransferase increased [Recovered/Resolved]
  - Gamma-glutamyltransferase increased [Recovered/Resolved]
  - C-reactive protein increased [Recovered/Resolved]
  - Face oedema [Recovered/Resolved]
  - Liver function test abnormal [Recovered/Resolved]
